FAERS Safety Report 14840821 (Version 2)
Quarter: 2018Q2

REPORT INFORMATION
  Report Type: Spontaneous
  Country: US (occurrence: US)
  Receive Date: 20180503
  Receipt Date: 20180516
  Transmission Date: 20180711
  Serious: No
  Sender: FDA-Public Use
  Company Number: US-PFIZER INC-2018177876

PATIENT
  Age: 55 Year
  Sex: Female

DRUGS (1)
  1. LEVOTHYROXINE SODIUM. [Suspect]
     Active Substance: LEVOTHYROXINE SODIUM
     Dosage: UNK, ONCE A DAY
     Route: 048
     Dates: end: 20180307

REACTIONS (2)
  - Blood prolactin increased [Unknown]
  - Intentional product misuse [Unknown]
